FAERS Safety Report 10851702 (Version 1)
Quarter: 2015Q1

REPORT INFORMATION
  Report Type: Spontaneous
  Country: US (occurrence: US)
  Receive Date: 20150222
  Receipt Date: 20150222
  Transmission Date: 20150721
  Serious: No
  Sender: FDA-Public Use
  Company Number: US-ALLERGAN-1409959US

PATIENT
  Age: 45 Year
  Sex: Male

DRUGS (4)
  1. OMNICEF                            /00497602/ [Concomitant]
     Indication: SINUSITIS
     Dosage: UNK
     Route: 048
     Dates: start: 20140512
  2. BOTOX [Suspect]
     Active Substance: ONABOTULINUMTOXINA
     Indication: OCCUPATIONAL EXPOSURE TO PRODUCT
     Dosage: UNK
     Dates: start: 20140515, end: 20140515
  3. MUCINEX [Concomitant]
     Active Substance: GUAIFENESIN
     Indication: SINUSITIS
     Dosage: UNK
     Dates: start: 20140512
  4. LIPITOR [Concomitant]
     Active Substance: ATORVASTATIN CALCIUM
     Indication: BLOOD CHOLESTEROL INCREASED
     Dosage: UNK
     Route: 048
     Dates: start: 20140401

REACTIONS (2)
  - Eye irritation [Recovered/Resolved]
  - Occupational exposure to product [Unknown]

NARRATIVE: CASE EVENT DATE: 20140515
